FAERS Safety Report 9752185 (Version 1)
Quarter: 2013Q4

REPORT INFORMATION
  Report Type: Spontaneous
  Country: FR (occurrence: None)
  Receive Date: 20131211
  Receipt Date: 20131211
  Transmission Date: 20140711
  Serious: Yes (Other)
  Sender: FDA-Public Use
  Company Number: SYM-2013-13688

PATIENT
  Age: 70 Year
  Sex: Male

DRUGS (10)
  1. FLAGYL [Suspect]
     Indication: CLOSTRIDIUM DIFFICILE COLITIS
     Route: 048
     Dates: start: 20131018, end: 20131020
  2. LOXEN [Suspect]
     Indication: PRODUCT USED FOR UNKNOWN INDICATION
     Dosage: 1 UNIT, DAILY, INTRAVENOUS (NOT OTHERWISE SPECIFIED)
     Route: 042
  3. ERYTHROMICIN [Concomitant]
  4. BROMAZEPAM [Concomitant]
  5. SEROPLEX (ESCITALOPRAM OXALATE) (ESCITALOPRAM OXALATE) [Concomitant]
  6. CO-DIOVAN [Concomitant]
  7. NEBIVOLOL [Concomitant]
  8. AMLODIPINE [Concomitant]
  9. PLAVIX (CLOPIDOGREL BISULFATE) (CLOPIDOGREL BISULFATE) [Concomitant]
  10. ATORVASTATIN [Concomitant]

REACTIONS (1)
  - Agranulocytosis [None]
